FAERS Safety Report 10729271 (Version 2)
Quarter: 2016Q1

REPORT INFORMATION
  Report Type: Report from Study
  Country: EG (occurrence: EG)
  Receive Date: 20150122
  Receipt Date: 20160204
  Transmission Date: 20160525
  Serious: Yes (Congenital Anomaly)
  Sender: FDA-Public Use
  Company Number: EG-NOVOPROD-435274

PATIENT

DRUGS (2)
  1. MIXTARD HUMAN 70/30 [Suspect]
     Active Substance: INSULIN HUMAN
     Indication: TYPE 1 DIABETES MELLITUS
     Dosage: UNK
     Route: 064
  2. LANTUS [Suspect]
     Active Substance: INSULIN GLARGINE
     Indication: PRODUCT USED FOR UNKNOWN INDICATION
     Dosage: UNK
     Route: 064

REACTIONS (7)
  - Congenital heart valve disorder [Not Recovered/Not Resolved]
  - Congenital coronary artery malformation [Not Recovered/Not Resolved]
  - Cardiac septal defect [Not Recovered/Not Resolved]
  - Maternal drugs affecting foetus [None]
  - Foetal exposure during pregnancy [Recovered/Resolved]
  - Growth retardation [Not Recovered/Not Resolved]
  - Premature baby [Unknown]

NARRATIVE: CASE EVENT DATE: 200805
